FAERS Safety Report 12757864 (Version 2)
Quarter: 2016Q4

REPORT INFORMATION
  Report Type: Spontaneous
  Country: US (occurrence: US)
  Receive Date: 20160919
  Receipt Date: 20161121
  Transmission Date: 20170207
  Serious: No
  Sender: FDA-Public Use
  Company Number: US-PFIZER INC-2016431240

PATIENT
  Age: 55 Year
  Sex: Female

DRUGS (6)
  1. CELEBREX [Suspect]
     Active Substance: CELECOXIB
     Indication: BACK PAIN
  2. NEURONTIN [Concomitant]
     Active Substance: GABAPENTIN
     Dosage: 900 MG, AS NEEDED ( 6X D )
  3. CELEBREX [Suspect]
     Active Substance: CELECOXIB
     Indication: OSTEOARTHRITIS
     Dosage: 200 MG, 2X/DAY
  4. CELEBREX [Suspect]
     Active Substance: CELECOXIB
     Indication: ARTHRALGIA
  5. DIAZEPAM. [Concomitant]
     Active Substance: DIAZEPAM
     Dosage: 10-20 MG, 4X/DAY
  6. OXYCODONE [Concomitant]
     Active Substance: OXYCODONE
     Dosage: 300 MG, 1-2 AS NEEDED (QID)

REACTIONS (2)
  - Ear infection [Unknown]
  - Hypoacusis [Unknown]
